FAERS Safety Report 9378150 (Version 2)
Quarter: 2013Q3

REPORT INFORMATION
  Report Type: Spontaneous
  Country: GB (occurrence: GB)
  Receive Date: 20130701
  Receipt Date: 20130822
  Transmission Date: 20140515
  Serious: Yes (Hospitalization)
  Sender: FDA-Public Use
  Company Number: GB-GLAXOSMITHKLINE-B0902593A

PATIENT
  Age: 73 Year
  Sex: Male
  Weight: 99 kg

DRUGS (7)
  1. AVANDIA [Suspect]
     Indication: TYPE 2 DIABETES MELLITUS
     Dosage: 4MG TWICE PER DAY
     Route: 048
     Dates: start: 200411, end: 200603
  2. GLICLAZIDE [Concomitant]
     Indication: TYPE 2 DIABETES MELLITUS
  3. LANSOPRAZOLE [Concomitant]
  4. LOSARTAN [Concomitant]
  5. TAMSULOSIN [Concomitant]
  6. ASPIRIN DISPERSIBLE [Concomitant]
  7. SIMVASTATIN [Concomitant]

REACTIONS (2)
  - Acute myocardial infarction [Unknown]
  - Fatigue [Unknown]
